FAERS Safety Report 16134622 (Version 1)
Quarter: 2019Q1

REPORT INFORMATION
  Report Type: Spontaneous
  Country: SE (occurrence: SE)
  Receive Date: 20190329
  Receipt Date: 20190329
  Transmission Date: 20190418
  Serious: Yes (Other)
  Sender: FDA-Public Use
  Company Number: SE-SA-S/SEZOL00007

PATIENT
  Age: 55 Year
  Sex: Female

DRUGS (5)
  1. SELOKENZOC [Concomitant]
     Active Substance: METOPROLOL SUCCINATE
  2. ZOCORD [Concomitant]
     Active Substance: SIMVASTATIN
  3. TROMBYL [Concomitant]
     Active Substance: ASPIRIN
  4. STILNOCT [Suspect]
     Active Substance: ZOLPIDEM TARTRATE
     Dosage: 5 MG, QD
     Route: 048
     Dates: start: 19990825, end: 19990915
  5. NITROMEX [Concomitant]

REACTIONS (2)
  - Fall [Unknown]
  - Petit mal epilepsy [Recovered/Resolved]

NARRATIVE: CASE EVENT DATE: 199908
